FAERS Safety Report 24297951 (Version 2)
Quarter: 2024Q4

REPORT INFORMATION
  Report Type: Spontaneous
  Country: US (occurrence: US)
  Receive Date: 20240909
  Receipt Date: 20241004
  Transmission Date: 20250115
  Serious: No
  Sender: MERCK
  Company Number: US-009507513-2409USA001944

PATIENT
  Sex: Female
  Weight: 94.785 kg

DRUGS (19)
  1. WINREVAIR [Suspect]
     Active Substance: SOTATERCEPT-CSRK
     Indication: Product used for unknown indication
     Dosage: UNK
     Dates: start: 2024, end: 2024
  2. WINREVAIR [Suspect]
     Active Substance: SOTATERCEPT-CSRK
     Dosage: INCREASED DOSE
     Dates: start: 2024
  3. REMODULIN [Suspect]
     Active Substance: TREPROSTINIL
     Indication: Pulmonary arterial hypertension
     Dosage: 0.075 MICROGRAM PER KILOGRAM, CONTINOUS
     Route: 058
     Dates: start: 20111025
  4. FISH OIL [Concomitant]
     Active Substance: FISH OIL
     Dosage: UNK
  5. KETAMINE HYDROCHLORIDE [Concomitant]
     Active Substance: KETAMINE HYDROCHLORIDE
     Dosage: UNK
  6. LECITHIN [Concomitant]
     Active Substance: LECITHIN
     Dosage: UNK
  7. FUROSEMIDE [Concomitant]
     Active Substance: FUROSEMIDE
     Dosage: UNK
  8. ELIQUIS [Concomitant]
     Active Substance: APIXABAN
     Dosage: UNK
  9. KLOR-CON M20 [Concomitant]
     Active Substance: POTASSIUM CHLORIDE
     Dosage: UNK
  10. OXYCODONE AND ACETAMINOPHEN [Concomitant]
     Active Substance: ACETAMINOPHEN\OXYCODONE HYDROCHLORIDE
     Dosage: UNK
  11. GABAPENTIN [Concomitant]
     Active Substance: GABAPENTIN
     Dosage: UNK
  12. CLONIDINE [Concomitant]
     Active Substance: CLONIDINE
     Dosage: UNK
  13. KETOPROFEN [Concomitant]
     Active Substance: KETOPROFEN
     Dosage: UNK
  14. ADCIRCA [Concomitant]
     Active Substance: TADALAFIL
     Dosage: UNK
  15. LIDOCAINE HYDROCHLORIDE [Concomitant]
     Active Substance: LIDOCAINE HYDROCHLORIDE
     Dosage: UNK
  16. AMITRIPTYLINE HYDROCHLORIDE [Concomitant]
     Active Substance: AMITRIPTYLINE HYDROCHLORIDE
     Dosage: UNK
  17. POLOXAMER [Concomitant]
     Active Substance: POLOXAMER
     Dosage: UNK
  18. METHIMAZOLE [Concomitant]
     Active Substance: METHIMAZOLE
     Dosage: UNK
  19. DILTIAZEM [Concomitant]
     Active Substance: DILTIAZEM
     Indication: Palpitations
     Dosage: UNK

REACTIONS (1)
  - Headache [Unknown]

NARRATIVE: CASE EVENT DATE: 20240101
